FAERS Safety Report 8175932-1 (Version None)
Quarter: 2012Q1

REPORT INFORMATION
  Report Type: 
  Country: None (occurrence: None)
  Receive Date: 20120228
  Receipt Date: 20120217
  Transmission Date: 20120608
  Serious: Yes (Other)
  Sender: FDA-Public Use
  Company Number: 2012P1005919

PATIENT
  Age: 21 Year
  Sex: Female

DRUGS (2)
  1. ALBENDAZOLE (NO PREF. NAME) [Suspect]
     Dosage: 400 MG;BID;PO, 3 TABLETS;QD;PO
     Route: 048
     Dates: start: 20111201, end: 20120101
  2. ALBENDAZOLE (NO PREF. NAME) [Suspect]
     Dosage: 400 MG;BID;PO, 3 TABLETS;QD;PO
     Route: 048
     Dates: start: 20120101

REACTIONS (2)
  - HEPATECTOMY [None]
  - DRUG LEVEL BELOW THERAPEUTIC [None]
